FAERS Safety Report 5429925-5 (Version None)
Quarter: 2007Q3

REPORT INFORMATION
  Report Type: 
  Country: None (occurrence: None)
  Receive Date: 20070829
  Receipt Date: 20070820
  Transmission Date: 20080115
  Serious: Yes (Other)
  Sender: FDA-Public Use
  Company Number: US-ROXANE LABORATORIES, INC-2007-DE-04880GD

PATIENT
  Sex: Male

DRUGS (4)
  1. MORPHINE [Suspect]
     Indication: NEURALGIA
     Route: 048
  2. MORPHINE [Suspect]
     Indication: CANCER PAIN
  3. GABAPENTIN [Suspect]
     Indication: NEURALGIA
  4. GABAPENTIN [Suspect]
     Indication: CANCER PAIN

REACTIONS (4)
  - DRUG INEFFECTIVE [None]
  - DRUG TOLERANCE [None]
  - MYOCLONUS [None]
  - SOMNOLENCE [None]
